FAERS Safety Report 20385029 (Version 1)
Quarter: 2022Q1

REPORT INFORMATION
  Report Type: Spontaneous
  Country: US (occurrence: US)
  Receive Date: 20220127
  Receipt Date: 20220127
  Transmission Date: 20220423
  Serious: No
  Sender: FDA-Public Use
  Company Number: US-ALLERGAN-2121988US

PATIENT
  Age: 55 Year
  Sex: Female

DRUGS (2)
  1. BOTOX COSMETIC [Suspect]
     Active Substance: ONABOTULINUMTOXINA
     Indication: Skin wrinkling
     Dosage: 30 UNITS, SINGLE
     Dates: start: 20210520, end: 20210520
  2. JUVEDERM PLUS XC [Concomitant]
     Indication: Skin wrinkling
     Dosage: UNK UNK, SINGLE
     Dates: start: 20210520, end: 20210520

REACTIONS (4)
  - Off label use [Unknown]
  - Contusion [Recovering/Resolving]
  - Injection site swelling [Recovering/Resolving]
  - Drug ineffective [Unknown]

NARRATIVE: CASE EVENT DATE: 20210520
